FAERS Safety Report 5575610-9 (Version None)
Quarter: 2007Q4

REPORT INFORMATION
  Report Type: 
  Country: None (occurrence: None)
  Receive Date: 20071226
  Receipt Date: 20071210
  Transmission Date: 20080405
  Serious: Yes (Hospitalization)
  Sender: FDA-Public Use
  Company Number: 021821

PATIENT
  Age: 49 Year
  Sex: Female

DRUGS (3)
  1. VERAPAMIL(VERAPAMIL HYDROCHLORIDE) EXTENDED RELEASE TABLET, MG [Suspect]
     Indication: INTENTIONAL OVERDOSE
     Dosage: 5.8 G, SINGLE
  2. CAPTOPRIL [Suspect]
     Indication: INTENTIONAL OVERDOSE
     Dosage: 1.5 G, SINGLE
  3. GLYBURIDE [Suspect]
     Indication: INTENTIONAL OVERDOSE
     Dosage: 65 MG, SINGLE

REACTIONS (15)
  - BLOOD GLUCOSE INCREASED [None]
  - BLOOD POTASSIUM INCREASED [None]
  - BRADYCARDIA [None]
  - FEELING COLD [None]
  - GENERAL PHYSICAL HEALTH DETERIORATION [None]
  - HYPOTENSION [None]
  - METABOLIC ACIDOSIS [None]
  - MULTIPLE DRUG OVERDOSE INTENTIONAL [None]
  - NO THERAPEUTIC RESPONSE [None]
  - PANCREATITIS ACUTE [None]
  - PULMONARY OEDEMA [None]
  - PUPILLARY LIGHT REFLEX TESTS ABNORMAL [None]
  - RENAL IMPAIRMENT [None]
  - RHYTHM IDIOVENTRICULAR [None]
  - SEDATION [None]
